FAERS Safety Report 23032026 (Version 2)
Quarter: 2023Q4

REPORT INFORMATION
  Report Type: Report from Study
  Country: US (occurrence: US)
  Receive Date: 20231005
  Receipt Date: 20231019
  Transmission Date: 20240110
  Serious: Yes (Other)
  Sender: FDA-Public Use
  Company Number: US-JNJFOC-20230962292

PATIENT
  Sex: Male
  Weight: 42.222 kg

DRUGS (1)
  1. SPRAVATO [Suspect]
     Active Substance: ESKETAMINE
     Indication: Depression

REACTIONS (7)
  - Dependence [Unknown]
  - Suicidal ideation [Recovered/Resolved]
  - Formication [Not Recovered/Not Resolved]
  - Increased appetite [Unknown]
  - Dysgeusia [Unknown]
  - Somnolence [Unknown]
  - Confusional state [Unknown]
